FAERS Safety Report 5745675-X (Version None)
Quarter: 2008Q2

REPORT INFORMATION
  Report Type: 
  Country: None (occurrence: None)
  Receive Date: 20080519
  Receipt Date: 20080328
  Transmission Date: 20081010
  Serious: No
  Sender: FDA-Public Use
  Company Number: TPA2008A00404

PATIENT
  Age: 41 Year
  Sex: Female
  Weight: 87.9978 kg

DRUGS (6)
  1. ROZEREM [Suspect]
     Indication: SLEEP DISORDER
     Dosage: 8 MG, QHS, PER ORAL
     Route: 048
     Dates: start: 20080324
  2. LAMICTAL [Concomitant]
  3. LEXAPRO [Concomitant]
  4. SYNTHROID [Concomitant]
  5. VALIUM [Concomitant]
  6. SEROQUEL [Concomitant]

REACTIONS (2)
  - FATIGUE [None]
  - POOR QUALITY SLEEP [None]
